FAERS Safety Report 8572141 (Version 4)
Quarter: 2012Q4

REPORT INFORMATION
  Report Type: 
  Country: GB (occurrence: GB)
  Receive Date: 20120521
  Receipt Date: 20120926
  Transmission Date: 20130627
  Serious: Yes (Other)
  Sender: FDA-Public Use
  Company Number: GB-JNJFOC-20120511355

PATIENT
  Age: 81 Year
  Sex: Male
  Weight: 69 kg

DRUGS (2)
  1. DUROGESIC DTRANS [Suspect]
     Indication: PAIN
     Route: 062
     Dates: start: 20120326
  2. DUROGESIC DTRANS [Suspect]
     Indication: PAIN
     Dosage: applying one and a half patches
     Route: 062

REACTIONS (12)
  - Withdrawal syndrome [Unknown]
  - Stress [Unknown]
  - Feeling abnormal [Unknown]
  - Pain [Unknown]
  - Incorrect drug administration rate [Unknown]
  - Abdominal pain [Unknown]
  - Therapeutic response decreased [Unknown]
  - Pruritus generalised [Unknown]
  - Wrong technique in drug usage process [Unknown]
  - Drug administration error [Unknown]
  - Drug administration error [Unknown]
  - Wrong technique in drug usage process [Unknown]
